FAERS Safety Report 5397825-5 (Version None)
Quarter: 2007Q3

REPORT INFORMATION
  Report Type: 
  Country: None (occurrence: None)
  Receive Date: 20070724
  Receipt Date: 20070724
  Transmission Date: 20080115
  Serious: Yes (Hospitalization)
  Sender: FDA-Public Use
  Company Number: None

PATIENT
  Age: 62 Year
  Sex: Female

DRUGS (6)
  1. TAXOL [Suspect]
     Indication: OVARIAN CANCER
  2. INSULIN [Concomitant]
  3. PREVACID [Concomitant]
  4. LASIX DILTIAZEM [Concomitant]
  5. LISINOPRIL [Concomitant]
  6. NUERONTIN [Concomitant]

REACTIONS (5)
  - CHEST PAIN [None]
  - DIABETES MELLITUS INADEQUATE CONTROL [None]
  - DYSPNOEA [None]
  - HYPOTENSION [None]
  - NEUROPATHY [None]
